FAERS Safety Report 14292651 (Version 1)
Quarter: 2017Q4

REPORT INFORMATION
  Report Type: Spontaneous
  Country: US (occurrence: US)
  Receive Date: 20171215
  Receipt Date: 20171215
  Transmission Date: 20180321
  Serious: No
  Sender: FDA-Public Use
  Company Number: US-ELI_LILLY_AND_COMPANY-US201712003655

PATIENT
  Sex: Male

DRUGS (2)
  1. LARTRUVO [Suspect]
     Active Substance: OLARATUMAB
     Indication: SARCOMA
     Dosage: 15 MG/KG, UNKNOWN
     Route: 065
  2. HALAVEN [Concomitant]
     Active Substance: ERIBULIN MESYLATE
     Indication: SARCOMA
     Dosage: 1 DF, UNKNOWN
     Route: 065

REACTIONS (1)
  - Therapy non-responder [Unknown]
